FAERS Safety Report 13169189 (Version 3)
Quarter: 2017Q3

REPORT INFORMATION
  Report Type: Report from Study
  Country: US (occurrence: US)
  Receive Date: 20170201
  Receipt Date: 20170724
  Transmission Date: 20171127
  Serious: Yes (Hospitalization, Other)
  Sender: FDA-Public Use
  Company Number: US-VIFOR (INTERNATIONAL) INC.-VIT-2017-00789

PATIENT
  Sex: Female

DRUGS (16)
  1. VELTASSA [Suspect]
     Active Substance: PATIROMER
     Indication: HYPERKALAEMIA
     Route: 048
     Dates: start: 201608, end: 201609
  2. VELTASSA [Suspect]
     Active Substance: PATIROMER
     Route: 048
     Dates: start: 20170129
  3. LASIX [Concomitant]
     Active Substance: FUROSEMIDE
     Indication: SWELLING
  4. ASCORBIC ACID. [Concomitant]
     Active Substance: ASCORBIC ACID
  5. HYDRALAZINE [Concomitant]
     Active Substance: HYDRALAZINE HYDROCHLORIDE
  6. RANITIDINE. [Concomitant]
     Active Substance: RANITIDINE
  7. PREDNISONE. [Concomitant]
     Active Substance: PREDNISONE
  8. CRANBERRY TABLETS [Concomitant]
  9. CULTURELLE [Concomitant]
     Active Substance: LACTOBACILLUS RHAMNOSUS
  10. TYLENOL [Concomitant]
     Active Substance: ACETAMINOPHEN
     Indication: MUSCLE SPASMS
  11. CALTRATE [Concomitant]
     Active Substance: CALCIUM CARBONATE
  12. LEVOTHYROXINE. [Concomitant]
     Active Substance: LEVOTHYROXINE
  13. TYLENOL [Concomitant]
     Active Substance: ACETAMINOPHEN
     Indication: ARTHRITIS
  14. ATORVASTATIN [Concomitant]
     Active Substance: ATORVASTATIN
  15. IRON [Concomitant]
     Active Substance: IRON
  16. CENTRUM SILVER [Concomitant]
     Active Substance: MINERALS\VITAMINS

REACTIONS (2)
  - Clostridium difficile infection [Unknown]
  - Drug dose omission [Unknown]

NARRATIVE: CASE EVENT DATE: 2016
